FAERS Safety Report 22293435 (Version 2)
Quarter: 2023Q2

REPORT INFORMATION
  Report Type: Report from Study
  Country: DO (occurrence: DO)
  Receive Date: 20230508
  Receipt Date: 20230623
  Transmission Date: 20230722
  Serious: Yes (Other)
  Sender: FDA-Public Use
  Company Number: DO-002147023-NVSC2023DO102265

PATIENT
  Sex: Female

DRUGS (3)
  1. KISQALI [Suspect]
     Active Substance: RIBOCICLIB
     Indication: Breast cancer
     Dosage: 600 MG, QD
     Route: 048
     Dates: start: 20220422
  2. KISQALI [Suspect]
     Active Substance: RIBOCICLIB
     Dosage: 600 MG, QD
     Route: 048
     Dates: start: 202208
  3. KISQALI [Suspect]
     Active Substance: RIBOCICLIB
     Dosage: 600 MG, QD
     Route: 048
     Dates: end: 202305

REACTIONS (7)
  - Metastases to bone [Not Recovered/Not Resolved]
  - Tumour marker increased [Unknown]
  - Influenza [Not Recovered/Not Resolved]
  - Catarrh [Unknown]
  - Decreased appetite [Unknown]
  - White blood cell count decreased [Unknown]
  - Red blood cell count decreased [Unknown]
